FAERS Safety Report 4308972-0 (Version None)
Quarter: 2004Q1

REPORT INFORMATION
  Report Type: 
  Country: None (occurrence: None)
  Receive Date: 20040227
  Receipt Date: 20040213
  Transmission Date: 20041129
  Serious: Yes (Hospitalization)
  Sender: FDA-Public Use
  Company Number: 2004-00675

PATIENT
  Age: 43 Year
  Sex: Male

DRUGS (6)
  1. LOXATANE (LOXAPAC) (LOXAPINE SUCCINATE) CAPSULE, 25MG [Suspect]
     Dosage: 25 MG, DAILY, ORAL
     Route: 048
  2. EFFEXOR [Suspect]
     Dosage: 75 MG, DAILY, ORAL
     Route: 048
  3. ATAZANAVIR (ATAZANAVIR) [Suspect]
     Dosage: 400 MG, DAILY, ORAL
     Route: 048
     Dates: start: 20030618
  4. DEPAKENE [Suspect]
     Dosage: 2.5 G, DAILY, ORAL
     Route: 048
  5. EPIVIR [Suspect]
     Dosage: 300 MG, DAILY, ORAL
     Route: 048
     Dates: start: 20040326
  6. ZIAGEN [Suspect]
     Dosage: 600 MG, DAILY, ORAL
     Route: 048
     Dates: start: 20010326

REACTIONS (3)
  - COGNITIVE DISORDER [None]
  - DISORIENTATION [None]
  - FALL [None]
